FAERS Safety Report 20957054 (Version 3)
Quarter: 2023Q2

REPORT INFORMATION
  Report Type: Spontaneous
  Country: US (occurrence: US)
  Receive Date: 20220614
  Receipt Date: 20230619
  Transmission Date: 20230722
  Serious: No
  Sender: FDA-Public Use
  Company Number: US-PFM-2020-18037

PATIENT
  Sex: Female
  Weight: 28 kg

DRUGS (2)
  1. HEMANGEOL [Suspect]
     Active Substance: PROPRANOLOL HYDROCHLORIDE
     Indication: Infantile haemangioma
     Dosage: 5.8 ML, BID (2/DAY)
     Route: 065
  2. HEMANGEOL [Suspect]
     Active Substance: PROPRANOLOL HYDROCHLORIDE
     Dosage: 6.4 ML, BID (2/DAY)
     Route: 048

REACTIONS (7)
  - Blood creatinine increased [Unknown]
  - Hepatic enzyme increased [Unknown]
  - Blood urea increased [Unknown]
  - Condition aggravated [Unknown]
  - Haemangioma [Unknown]
  - Product administered to patient of inappropriate age [Unknown]
  - Off label use [Unknown]
